FAERS Safety Report 19457831 (Version 1)
Quarter: 2021Q2

REPORT INFORMATION
  Report Type: Spontaneous
  Country: US (occurrence: US)
  Receive Date: 20210624
  Receipt Date: 20210624
  Transmission Date: 20210717
  Serious: No
  Sender: FDA-Public Use
  Company Number: US-PFIZER INC-2021599118

PATIENT
  Age: 23 Year
  Sex: Female
  Weight: 90.4 kg

DRUGS (1)
  1. DEPO?PROVERA [Suspect]
     Active Substance: MEDROXYPROGESTERONE ACETATE
     Dosage: 104MG PER 0.65ML

REACTIONS (2)
  - Syringe issue [Unknown]
  - Drug dose omission by device [Unknown]
